FAERS Safety Report 9606242 (Version 1)
Quarter: 2013Q4

REPORT INFORMATION
  Report Type: Spontaneous
  Country: TW (occurrence: TW)
  Receive Date: 20131008
  Receipt Date: 20131008
  Transmission Date: 20140711
  Serious: Yes (Other)
  Sender: FDA-Public Use
  Company Number: TW-009507513-1310TWN001225

PATIENT
  Age: 40 Year
  Sex: Female

DRUGS (2)
  1. RIBAVIRIN [Suspect]
     Indication: CHRONIC HEPATITIS C
     Dosage: 800MG (4 TABLETS) THREE TIMES DAILY
     Route: 048
     Dates: end: 20121115
  2. PEG-INTRON [Suspect]
     Indication: CHRONIC HEPATITIS C
     Dosage: 100 MICROGRAM, WEEKLY
     Route: 058
     Dates: start: 20120531, end: 20121115

REACTIONS (3)
  - Blindness [Recovered/Resolved]
  - Blindness [Recovering/Resolving]
  - Autoimmune disorder [Recovering/Resolving]
